FAERS Safety Report 8917627 (Version 1)
Quarter: 2012Q4

REPORT INFORMATION
  Report Type: 
  Country: US (occurrence: US)
  Receive Date: 20121119
  Receipt Date: 20121119
  Transmission Date: 20130627
  Serious: Yes (Hospitalization, Other)
  Sender: FDA-Public Use
  Company Number: US-009507513-1206USA04848

PATIENT

DRUGS (4)
  1. FOSAMAX [Suspect]
     Indication: OSTEOPENIA
     Dosage: 70 mg, qw
     Route: 048
     Dates: start: 200011, end: 200803
  2. FOSAMAX [Suspect]
     Indication: OSTEOPOROSIS PROPHYLAXIS
     Dosage: 35mg qw
     Route: 048
  3. ALENDRONATE SODIUM [Suspect]
     Indication: OSTEOPOROSIS PROPHYLAXIS
     Dosage: 70 mg, UNK
     Route: 048
     Dates: start: 200804, end: 201007
  4. ALENDRONATE SODIUM [Suspect]
     Indication: OSTEOPENIA

REACTIONS (20)
  - Femur fracture [Unknown]
  - Haemorrhagic anaemia [Recovered/Resolved]
  - Anaemia postoperative [Recovered/Resolved]
  - Fall [Unknown]
  - Femur fracture [Unknown]
  - Fall [Unknown]
  - Open reduction of fracture [Unknown]
  - Intramedullary rod insertion [Unknown]
  - Bone density decreased [Unknown]
  - Tooth extraction [Unknown]
  - Tooth disorder [Unknown]
  - Hypertension [Unknown]
  - Macular degeneration [Unknown]
  - Upper respiratory tract infection [Unknown]
  - Carpal tunnel decompression [Unknown]
  - Carpal tunnel decompression [Unknown]
  - Actinic keratosis [Unknown]
  - Eczema [Unknown]
  - Dyslipidaemia [Unknown]
  - Dyshidrotic eczema [Unknown]
